FAERS Safety Report 12996468 (Version 1)
Quarter: 2016Q4

REPORT INFORMATION
  Report Type: Report from Study
  Country: US (occurrence: US)
  Receive Date: 20161204
  Receipt Date: 20161204
  Transmission Date: 20170207
  Serious: Yes (Other)
  Sender: FDA-Public Use
  Company Number: US-UCBSA-2016005490

PATIENT
  Age: 31 Year
  Sex: Female

DRUGS (2)
  1. CERTOLIZUMAB PEGOL [Suspect]
     Active Substance: CERTOLIZUMAB PEGOL
     Indication: RHEUMATOID ARTHRITIS
     Dosage: 400 MG, EV 2 WEEKS(QOW), LOADING DOSE
     Dates: start: 20160125, end: 2016
  2. CERTOLIZUMAB PEGOL [Suspect]
     Active Substance: CERTOLIZUMAB PEGOL
     Dosage: 400 MG, MONTHLY (QM)
     Dates: start: 2016, end: 2016

REACTIONS (12)
  - Abdominal pain upper [Unknown]
  - Headache [Recovering/Resolving]
  - Back pain [Unknown]
  - Drug administered at inappropriate site [Unknown]
  - Injection site bruising [Not Recovered/Not Resolved]
  - Chills [Unknown]
  - Urinary tract infection [Not Recovered/Not Resolved]
  - Musculoskeletal pain [Recovering/Resolving]
  - Asthenia [Unknown]
  - Bacterial vaginosis [Not Recovered/Not Resolved]
  - Pyrexia [Unknown]
  - Pain [Unknown]

NARRATIVE: CASE EVENT DATE: 20160125
